FAERS Safety Report 7110039-3 (Version None)
Quarter: 2010Q4

REPORT INFORMATION
  Report Type: 
  Country: None (occurrence: None)
  Receive Date: 20101112
  Receipt Date: 20101027
  Transmission Date: 20110411
  Serious: Yes (Hospitalization)
  Sender: FDA-Public Use
  Company Number: 1-18775698

PATIENT
  Age: 66 Year
  Sex: Female
  Weight: 86.4102 kg

DRUGS (10)
  1. QUALAQUIN [Suspect]
     Indication: MUSCLE SPASMS
     Dosage: AS NEEDED, ORAL
     Route: 048
     Dates: start: 20081002
  2. PEPCID [Concomitant]
  3. TOPROL-XL [Concomitant]
  4. PROZAC [Concomitant]
  5. XANAX [Concomitant]
  6. GLUCOPHAGE [Concomitant]
  7. ASPIRIN [Concomitant]
  8. MAGNESIUM [Concomitant]
  9. POTASSIUM CHLORIDE [Concomitant]
  10. VITAMIN D [Concomitant]

REACTIONS (2)
  - RENAL FAILURE ACUTE [None]
  - THROMBOTIC THROMBOCYTOPENIC PURPURA [None]
